FAERS Safety Report 6299566-9 (Version None)
Quarter: 2009Q3

REPORT INFORMATION
  Report Type: 
  Country: None (occurrence: None)
  Receive Date: 20090806
  Receipt Date: 20090731
  Transmission Date: 20100115
  Serious: Yes (Hospitalization)
  Sender: FDA-Public Use
  Company Number: TW-BAYER-200927123GPV

PATIENT
  Age: 67 Year
  Sex: Male
  Weight: 53 kg

DRUGS (1)
  1. SORAFENIB [Suspect]
     Indication: HEPATIC NEOPLASM MALIGNANT
     Dosage: TOTAL DAILY DOSE: 800 MG
     Route: 048
     Dates: start: 20090601, end: 20090713

REACTIONS (4)
  - ARTHRITIS BACTERIAL [None]
  - CAMPYLOBACTER INFECTION [None]
  - HEPATIC FUNCTION ABNORMAL [None]
  - SEPSIS [None]
